FAERS Safety Report 25385089 (Version 1)
Quarter: 2025Q2

REPORT INFORMATION
  Report Type: Spontaneous
  Country: US (occurrence: US)
  Receive Date: 20250602
  Receipt Date: 20250602
  Transmission Date: 20250716
  Serious: No
  Sender: ROCHE
  Company Number: US-ROCHE-10000296396

PATIENT
  Sex: Female

DRUGS (8)
  1. XOLAIR PFS [Suspect]
     Active Substance: OMALIZUMAB
     Indication: Urticaria
     Route: 058
  2. XOLAIR PFS [Suspect]
     Active Substance: OMALIZUMAB
  3. ONDANSETRON HYDROCHLORIDE [Concomitant]
     Active Substance: ONDANSETRON HYDROCHLORIDE
  4. PUMP FREEDOM 60 [Concomitant]
  5. CUVITRU [Concomitant]
     Active Substance: HUMAN IMMUNOGLOBULIN G
  6. EPINEPHRINE AUTOINJ [Concomitant]
  7. MELOXICAM [Concomitant]
     Active Substance: MELOXICAM
  8. APAP [Concomitant]
     Active Substance: ACETAMINOPHEN

REACTIONS (3)
  - Pain [Unknown]
  - Peripheral swelling [Unknown]
  - Limb discomfort [Unknown]
